FAERS Safety Report 10200787 (Version 1)
Quarter: 2014Q2

REPORT INFORMATION
  Report Type: Spontaneous
  Country: DK (occurrence: DK)
  Receive Date: 20140528
  Receipt Date: 20140528
  Transmission Date: 20141212
  Serious: Yes (Life-Threatening)
  Sender: FDA-Public Use
  Company Number: DK-AMGEN-DNKSP2014038045

PATIENT
  Age: 80 Year
  Sex: Female

DRUGS (5)
  1. PROLIA [Suspect]
     Indication: PRODUCT USED FOR UNKNOWN INDICATION
     Dosage: 60 MG/ML, Q6MO
     Route: 058
     Dates: start: 20140129, end: 20140129
  2. FLUTIDE [Concomitant]
     Indication: ASTHMA
  3. PREDNISOLON [Concomitant]
     Indication: MYALGIA
  4. AMLODIPIN [Concomitant]
  5. CITALOPRAM [Concomitant]

REACTIONS (1)
  - Urticaria [Recovered/Resolved]
